FAERS Safety Report 20639410 (Version 1)
Quarter: 2022Q1

REPORT INFORMATION
  Report Type: Spontaneous
  Country: US (occurrence: US)
  Receive Date: 20220326
  Receipt Date: 20220326
  Transmission Date: 20220423
  Serious: Yes (Other)
  Sender: FDA-Public Use
  Company Number: US-Shilpa Medicare Limited-SML-US-2022-00260

PATIENT
  Age: 57 Year
  Sex: Male

DRUGS (1)
  1. DOCETAXEL [Suspect]
     Active Substance: DOCETAXEL
     Indication: Head and neck cancer
     Dosage: ON DAYS 1 AND 8
     Route: 065

REACTIONS (4)
  - Blepharitis [Unknown]
  - Meibomian gland dysfunction [Unknown]
  - Disease progression [Unknown]
  - Nausea [Unknown]
